FAERS Safety Report 24333956 (Version 1)
Quarter: 2024Q3

REPORT INFORMATION
  Report Type: Spontaneous
  Country: GB (occurrence: GB)
  Receive Date: 20240918
  Receipt Date: 20240918
  Transmission Date: 20241017
  Serious: Yes (Other)
  Sender: ROCHE
  Company Number: GB-ROCHE-10000052494

PATIENT
  Age: 49 Year
  Sex: Female
  Weight: 71.9 kg

DRUGS (2)
  1. OCREVUS [Suspect]
     Active Substance: OCRELIZUMAB
     Indication: Relapsing-remitting multiple sclerosis
     Route: 065
  2. KADCYLA [Suspect]
     Active Substance: ADO-TRASTUZUMAB EMTANSINE
     Indication: Product used for unknown indication
     Route: 042
     Dates: start: 20150811

REACTIONS (5)
  - Breast cancer [Not Recovered/Not Resolved]
  - Peripheral sensorimotor neuropathy [Unknown]
  - Neurotoxicity [Unknown]
  - Ophthalmoplegia [Unknown]
  - Bulbar palsy [Unknown]
